FAERS Safety Report 11777448 (Version 1)
Quarter: 2015Q4

REPORT INFORMATION
  Report Type: Spontaneous
  Country: US (occurrence: US)
  Receive Date: 20151125
  Receipt Date: 20151125
  Transmission Date: 20160304
  Serious: No
  Sender: FDA-Public Use
  Company Number: US-PFIZER INC-2015401416

PATIENT
  Age: 75 Year
  Sex: Male
  Weight: 51.71 kg

DRUGS (2)
  1. INLYTA [Suspect]
     Active Substance: AXITINIB
     Indication: RENAL CANCER
     Dosage: 5 MG, 2X/DAY, 12 HOURS APART
     Route: 048
     Dates: start: 20141117, end: 201510
  2. ASPIRIN. [Concomitant]
     Active Substance: ASPIRIN
     Dosage: 325 MG, DAILY
     Route: 048

REACTIONS (2)
  - Renal cancer [Unknown]
  - Disease progression [Unknown]

NARRATIVE: CASE EVENT DATE: 201510
